FAERS Safety Report 7619626-7 (Version None)
Quarter: 2011Q3

REPORT INFORMATION
  Report Type: 
  Country: None (occurrence: None)
  Receive Date: 20110719
  Receipt Date: 20090209
  Transmission Date: 20111222
  Serious: Yes (Other)
  Sender: FDA-Public Use
  Company Number: US-BAYER-200912396NA

PATIENT
  Age: 57 Year
  Sex: Male
  Weight: 99.773 kg

DRUGS (15)
  1. PLAVIX [Concomitant]
     Dosage: 75 MG, QD
     Route: 048
     Dates: start: 20010713
  2. LASIX [Concomitant]
     Dosage: 10 MG, UNK
     Route: 042
     Dates: start: 20011023, end: 20011023
  3. VANCOMYCIN [Concomitant]
     Dosage: 1500 MG, UNK
     Route: 042
     Dates: start: 20011023, end: 20011023
  4. LOTREL [Concomitant]
     Dosage: 1 PER DAY
     Route: 048
  5. PRAVACHOL [Concomitant]
     Dosage: 20 MG, QD
     Route: 048
  6. TOPROL-XL [Concomitant]
     Dosage: 50 MG, QD
     Route: 048
  7. LASIX [Concomitant]
     Dosage: 40 MG, UNK
     Route: 042
     Dates: start: 20011023, end: 20011023
  8. CONTRAST MEDIA [Concomitant]
     Indication: CATHETERISATION CARDIAC
     Dosage: UNK
     Dates: start: 20011023
  9. CELEBREX [Concomitant]
     Dosage: 200 MG, QD
     Route: 048
  10. HEPARIN [Concomitant]
     Dosage: 10000 U, UNK
     Route: 042
     Dates: start: 20011023, end: 20011023
  11. ACETYLSALICYLIC ACID SRT [Concomitant]
     Dosage: 81 MG, QD
     Route: 048
  12. PROTAMINE SULFATE [Concomitant]
     Dosage: 450 MG, UNK
     Route: 042
     Dates: start: 20011023, end: 20011023
  13. ANCEF [Concomitant]
     Dosage: 2 G, UNK
     Route: 042
     Dates: start: 20011023, end: 20011023
  14. TRASYLOL [Suspect]
     Indication: CORONARY ARTERY BYPASS
     Dosage: 1 ML, ONCE TEST DOSE
     Route: 042
     Dates: start: 20011023, end: 20011023
  15. HEPARIN [Concomitant]
     Dosage: 7000 U TOTAL
     Route: 042
     Dates: start: 20011023, end: 20011023

REACTIONS (5)
  - RENAL FAILURE [None]
  - PAIN [None]
  - UNEVALUABLE EVENT [None]
  - INJURY [None]
  - RENAL FAILURE ACUTE [None]
